FAERS Safety Report 16025931 (Version 2)
Quarter: 2019Q1

REPORT INFORMATION
  Report Type: Spontaneous
  Country: FR (occurrence: FR)
  Receive Date: 20190302
  Receipt Date: 20190322
  Transmission Date: 20190418
  Serious: Yes (Hospitalization)
  Sender: FDA-Public Use
  Company Number: FR-ACCORD-110307

PATIENT
  Age: 53 Year
  Sex: Male
  Weight: 60 kg

DRUGS (5)
  1. ETOPOSIDE. [Suspect]
     Active Substance: ETOPOSIDE
     Indication: TESTIS CANCER
     Route: 042
     Dates: start: 20120502, end: 20120506
  2. BLEOMYCIN [Suspect]
     Active Substance: BLEOMYCIN SULFATE
     Indication: TESTIS CANCER
     Dosage: 30 MG, TOTAL
     Route: 042
     Dates: start: 20120502, end: 20120502
  3. CISPLATINE MYLAN [Suspect]
     Active Substance: CISPLATIN
     Indication: TESTIS CANCER
     Dosage: 37 MG, QD
     Route: 042
     Dates: start: 20120502, end: 20120506
  4. CISPLATIN. [Suspect]
     Active Substance: CISPLATIN
     Indication: TESTIS CANCER
     Route: 042
     Dates: start: 20120502, end: 20120506
  5. ETOPOSIDE MYLAN [Suspect]
     Active Substance: ETOPOSIDE
     Indication: TESTIS CANCER
     Dosage: 186 MG,QD
     Route: 042
     Dates: start: 20120502, end: 20120506

REACTIONS (2)
  - Pancytopenia [Not Recovered/Not Resolved]
  - Pyrexia [Not Recovered/Not Resolved]

NARRATIVE: CASE EVENT DATE: 20120509
